FAERS Safety Report 8425644-1 (Version None)
Quarter: 2012Q2

REPORT INFORMATION
  Report Type: 
  Country: None (occurrence: None)
  Receive Date: 20120611
  Receipt Date: 20120604
  Transmission Date: 20120825
  Serious: Yes (Hospitalization, Other)
  Sender: FDA-Public Use
  Company Number: PHHY2012FR048703

PATIENT
  Sex: Male

DRUGS (11)
  1. CRESTOR [Concomitant]
  2. BISOPROLOL FUMARATE [Concomitant]
  3. ALLOPURINOL [Concomitant]
  4. CLARITHROMYCIN [Interacting]
     Indication: ERYSIPELAS
     Dates: start: 20110801
  5. PREDNISOLONE [Concomitant]
  6. HYPERIUM [Concomitant]
  7. RABEPRAZOLE SODIUM [Concomitant]
  8. COZAAR [Concomitant]
  9. CERTICAN [Suspect]
  10. ASPEGIC 1000 [Concomitant]
  11. NEORAL [Interacting]

REACTIONS (27)
  - HYPERKALIURIA [None]
  - RENAL IMPAIRMENT [None]
  - ERYSIPELAS [None]
  - RENAL FAILURE CHRONIC [None]
  - HYPERKALAEMIA [None]
  - POLYURIA [None]
  - NEPHROPATHY [None]
  - KIDNEY FIBROSIS [None]
  - GLOMERULOSCLEROSIS [None]
  - IMMUNOSUPPRESSANT DRUG LEVEL DECREASED [None]
  - PROTEINURIA [None]
  - DRUG INTERACTION [None]
  - RENAL ISCHAEMIA [None]
  - OEDEMA PERIPHERAL [None]
  - OVERDOSE [None]
  - BLOOD CREATININE INCREASED [None]
  - ARTERIAL DISORDER [None]
  - RENAL TUBULAR ATROPHY [None]
  - RENAL ARTERY OCCLUSION [None]
  - ANAEMIA [None]
  - THROMBOCYTOPENIA [None]
  - URINE SODIUM INCREASED [None]
  - RENAL FAILURE ACUTE [None]
  - ACIDOSIS [None]
  - NEPHROPATHY TOXIC [None]
  - HAEMATURIA [None]
  - IMMUNOSUPPRESSANT DRUG LEVEL INCREASED [None]
